FAERS Safety Report 10751923 (Version 3)
Quarter: 2024Q1

REPORT INFORMATION
  Report Type: Spontaneous
  Country: US (occurrence: US)
  Receive Date: 20150130
  Receipt Date: 20240130
  Transmission Date: 20240410
  Serious: No
  Sender: FDA-Public Use
  Company Number: US-ENDO PHARMACEUTICALS INC.-FORT20140190

PATIENT
  Sex: Male
  Weight: 75.283 kg

DRUGS (6)
  1. FORTESTA [Suspect]
     Active Substance: TESTOSTERONE
     Indication: Blood testosterone decreased
     Dosage: 10 MG, QID
     Route: 061
  2. FORTESTA [Suspect]
     Active Substance: TESTOSTERONE
     Indication: Blood testosterone decreased
     Dosage: 10 MG, QID
     Route: 061
  3. FORTESTA [Suspect]
     Active Substance: TESTOSTERONE
     Dosage: 10 MG, 8 TIMES A DAY
     Route: 061
  4. FORTESTA [Suspect]
     Active Substance: TESTOSTERONE
     Dosage: 10 MG, 8 TIMES A DAY
     Route: 061
  5. FORTESTA [Suspect]
     Active Substance: TESTOSTERONE
     Dosage: UNKNOWN, DAILY (ONE SQUIRT TO EACH LEG ON INNER THIGH, EVERY MORNING)
     Route: 061
  6. FORTESTA [Suspect]
     Active Substance: TESTOSTERONE
     Dosage: UNKNOWN, DAILY (ONE SQUIRT TO EACH LEG ON INNER THIGH, EVERY MORNING)
     Route: 061

REACTIONS (2)
  - Blood testosterone increased [Recovered/Resolved]
  - Prescribed overdose [Recovered/Resolved]
